FAERS Safety Report 4830783-8 (Version None)
Quarter: 2005Q4

REPORT INFORMATION
  Report Type: 
  Country: None (occurrence: None)
  Receive Date: 20051117
  Receipt Date: 20051108
  Transmission Date: 20060501
  Serious: Yes (Death, Hospitalization)
  Sender: FDA-Public Use
  Company Number: US-MERCK-0511USA01484

PATIENT
  Age: 81 Year
  Sex: Male

DRUGS (5)
  1. VIOXX [Suspect]
     Indication: ARTHRALGIA
     Route: 048
     Dates: start: 20010101, end: 20030101
  2. PROSCAR [Concomitant]
     Route: 065
  3. CASODEX [Concomitant]
     Route: 065
  4. ASPIRIN [Concomitant]
     Route: 065
  5. LUPRON [Concomitant]
     Route: 065

REACTIONS (8)
  - ARTHRITIS [None]
  - CEREBROVASCULAR ACCIDENT [None]
  - DEATH [None]
  - DIZZINESS [None]
  - FATIGUE [None]
  - MYOCARDIAL INFARCTION [None]
  - SLEEP APNOEA SYNDROME [None]
  - VISUAL DISTURBANCE [None]
